FAERS Safety Report 9493734 (Version 1)
Quarter: 2013Q3

REPORT INFORMATION
  Report Type: Spontaneous
  Country: FR (occurrence: FR)
  Receive Date: 20130902
  Receipt Date: 20130902
  Transmission Date: 20140515
  Serious: Yes (Hospitalization)
  Sender: FDA-Public Use
  Company Number: FR-JNJFOC-20130812117

PATIENT
  Age: 67 Year
  Sex: Female

DRUGS (17)
  1. DUROGESIC [Suspect]
     Indication: FIBROMYALGIA
     Route: 062
     Dates: start: 201306, end: 20130802
  2. DUROGESIC [Suspect]
     Indication: ARTHRALGIA
     Route: 062
     Dates: start: 201306, end: 20130802
  3. DUROGESIC [Suspect]
     Indication: PAIN
     Route: 062
     Dates: start: 201306, end: 20130802
  4. XARELTO [Concomitant]
     Indication: EMBOLISM VENOUS
     Route: 065
     Dates: start: 201301, end: 201304
  5. XARELTO [Concomitant]
     Indication: EMBOLISM VENOUS
     Route: 065
     Dates: start: 201306, end: 20130802
  6. XARELTO [Concomitant]
     Indication: THROMBOSIS PROPHYLAXIS
     Route: 065
     Dates: start: 201301, end: 201304
  7. XARELTO [Concomitant]
     Indication: THROMBOSIS PROPHYLAXIS
     Route: 065
     Dates: start: 201306, end: 20130802
  8. XARELTO [Concomitant]
     Indication: PULMONARY EMBOLISM
     Route: 065
     Dates: start: 201306, end: 20130802
  9. XARELTO [Concomitant]
     Indication: PULMONARY EMBOLISM
     Route: 065
     Dates: start: 201301, end: 201304
  10. XARELTO [Concomitant]
     Indication: DEEP VEIN THROMBOSIS
     Route: 065
     Dates: start: 201306, end: 20130802
  11. XARELTO [Concomitant]
     Indication: DEEP VEIN THROMBOSIS
     Route: 065
     Dates: start: 201301, end: 201304
  12. TERCIAN [Concomitant]
     Route: 065
  13. INEXIUM [Concomitant]
     Route: 065
  14. SIFROL [Concomitant]
     Route: 065
  15. ADROVANCE [Concomitant]
     Dosage: DOSE:70/5600 (UNSPECIFIED UNITS)
     Route: 065
  16. NEURONTIN [Concomitant]
     Route: 065
  17. CYMBALTA [Concomitant]
     Route: 065

REACTIONS (1)
  - Hepatitis acute [Recovered/Resolved]
